FAERS Safety Report 10166816 (Version 1)
Quarter: 2014Q2

REPORT INFORMATION
  Report Type: Spontaneous
  Country: US (occurrence: None)
  Receive Date: 20140508
  Receipt Date: 20140508
  Transmission Date: 20141212
  Serious: Yes (Hospitalization)
  Sender: FDA-Public Use
  Company Number: UTC-045710

PATIENT
  Age: 50 Year
  Sex: Female
  Weight: 112 kg

DRUGS (2)
  1. TYVASO (0.6 MILLIGRAM/MILLILITERS, AEROSOL FOR INHALATION) (TREPROSTINIL SODIUM) [Suspect]
     Indication: CONNECTIVE TISSUE DISORDER
     Dosage: 18-54 MICROGRAMS (4 IN 1 D), INHALATION
     Route: 055
     Dates: start: 20140203
  2. REVATIO (SILDENAFIL CITRATE) [Concomitant]

REACTIONS (4)
  - Interstitial lung disease [None]
  - Dyspnoea [None]
  - Infection [None]
  - Urinary tract infection [None]
